FAERS Safety Report 23340808 (Version 2)
Quarter: 2024Q1

REPORT INFORMATION
  Report Type: Report from Study
  Country: BR (occurrence: BR)
  Receive Date: 20231227
  Receipt Date: 20240104
  Transmission Date: 20240409
  Serious: Yes (Other)
  Sender: FDA-Public Use
  Company Number: BR-TAKEDA-2023TUS123808

PATIENT
  Sex: Female
  Weight: 75 kg

DRUGS (4)
  1. HUMAN IMMUNOGLOBULIN G\HYALURONIDASE RECOMBINANT HUMAN [Suspect]
     Active Substance: HUMAN IMMUNOGLOBULIN G\HYALURONIDASE (HUMAN RECOMBINANT)
     Indication: Secondary immunodeficiency
     Dosage: 30 GRAM, MONTHLY
     Route: 058
     Dates: start: 20210331
  2. HUMAN IMMUNOGLOBULIN G\HYALURONIDASE RECOMBINANT HUMAN [Suspect]
     Active Substance: HUMAN IMMUNOGLOBULIN G\HYALURONIDASE (HUMAN RECOMBINANT)
     Dosage: UNK
     Route: 065
  3. DIMETHICONE [Concomitant]
     Active Substance: DIMETHICONE
     Dosage: UNK UNK, TID
     Route: 065
  4. PENTASA [Concomitant]
     Active Substance: MESALAMINE
     Dosage: 2 GRAM

REACTIONS (4)
  - Nervous system disorder [Recovered/Resolved]
  - Autoimmune disorder [Unknown]
  - Gastrointestinal infection [Unknown]
  - Gastrointestinal inflammation [Recovered/Resolved]
